FAERS Safety Report 20456400 (Version 1)
Quarter: 2022Q1

REPORT INFORMATION
  Report Type: Spontaneous
  Country: US (occurrence: None)
  Receive Date: 20220210
  Receipt Date: 20220210
  Transmission Date: 20220423
  Serious: Yes (Disabling)
  Sender: FDA-Public Use
  Company Number: None

PATIENT
  Age: 21 Year
  Sex: Male
  Weight: 60.75 kg

DRUGS (1)
  1. BUPROPION [Suspect]
     Active Substance: BUPROPION
     Indication: Major depression
     Dates: start: 20151101, end: 20180530

REACTIONS (5)
  - Generalised tonic-clonic seizure [None]
  - Rotator cuff repair [None]
  - Pain [None]
  - Syncope [None]
  - Joint dislocation [None]

NARRATIVE: CASE EVENT DATE: 20170701
